FAERS Safety Report 10192874 (Version 1)
Quarter: 2014Q2

REPORT INFORMATION
  Report Type: Report from Study
  Country: US (occurrence: US)
  Receive Date: 20140523
  Receipt Date: 20140523
  Transmission Date: 20141212
  Serious: Yes (Hospitalization, Other)
  Sender: FDA-Public Use
  Company Number: US-ABBVIE-14P-163-1237372-00

PATIENT
  Age: 33 Year
  Sex: Female
  Weight: 104.42 kg

DRUGS (1)
  1. HUMIRA [Suspect]
     Indication: RHEUMATOID ARTHRITIS
     Route: 058
     Dates: start: 2011, end: 20140422

REACTIONS (9)
  - Dizziness [Recovered/Resolved]
  - Blood glucose abnormal [Unknown]
  - Pneumonia [Recovering/Resolving]
  - Sepsis [Recovering/Resolving]
  - Pyrexia [Recovering/Resolving]
  - Nausea [Recovered/Resolved]
  - Dyspnoea [Recovering/Resolving]
  - Injury associated with device [Recovered/Resolved]
  - Dyspnoea [Not Recovered/Not Resolved]
